FAERS Safety Report 7033113-9 (Version None)
Quarter: 2010Q4

REPORT INFORMATION
  Report Type: 
  Country: None (occurrence: None)
  Receive Date: 20101007
  Receipt Date: 20101001
  Transmission Date: 20110411
  Serious: Yes (Other)
  Sender: FDA-Public Use
  Company Number: BR-PFIZER INC-2010125369

PATIENT
  Age: 47 Year
  Sex: Male

DRUGS (1)
  1. VORICONAZOLE [Suspect]
     Indication: INFECTION
     Dosage: 200 MG, 2X/DAY
     Route: 048

REACTIONS (1)
  - INFECTION [None]
